FAERS Safety Report 6463250-9 (Version None)
Quarter: 2009Q4

REPORT INFORMATION
  Report Type: 
  Country: None (occurrence: None)
  Receive Date: 20091130
  Receipt Date: 20090528
  Transmission Date: 20100525
  Serious: Yes (Other)
  Sender: FDA-Public Use
  Company Number: US-AMGEN-QUU349163

PATIENT
  Sex: Female

DRUGS (3)
  1. ENBREL [Suspect]
     Indication: PSORIATIC ARTHROPATHY
     Route: 058
  2. ENBREL [Suspect]
     Indication: PSORIASIS
  3. METHOTREXATE [Concomitant]

REACTIONS (7)
  - BACK PAIN [None]
  - BONE PAIN [None]
  - PNEUMONIA [None]
  - PSORIASIS [None]
  - SKIN INFECTION [None]
  - UPPER RESPIRATORY TRACT INFECTION [None]
  - URTICARIA [None]
